FAERS Safety Report 9937977 (Version 3)
Quarter: 2014Q2

REPORT INFORMATION
  Report Type: Spontaneous
  Country: US (occurrence: US)
  Receive Date: 20140303
  Receipt Date: 20140423
  Transmission Date: 20141212
  Serious: No
  Sender: FDA-Public Use
  Company Number: US-BIOGENIDEC-2014BI017312

PATIENT
  Age: 66 Year
  Sex: Male

DRUGS (11)
  1. FERROUS GLUCONATE [Concomitant]
  2. LEVOTHYROXINE SODIUM [Concomitant]
  3. LYRICA [Concomitant]
  4. RITALIN [Concomitant]
  5. SIMVASTATIN [Concomitant]
  6. VITAMIN C [Concomitant]
  7. VITAMIN D3 COMPLETE [Concomitant]
  8. TECFIDERA [Suspect]
     Indication: MULTIPLE SCLEROSIS
     Route: 048
  9. ASPIRIN LOW DOSE [Concomitant]
  10. BACLOFEN [Concomitant]
  11. CLARITIN [Concomitant]

REACTIONS (5)
  - Decreased appetite [Unknown]
  - Weight decreased [Not Recovered/Not Resolved]
  - Dyspepsia [Unknown]
  - Vomiting [Not Recovered/Not Resolved]
  - Flushing [Not Recovered/Not Resolved]
